FAERS Safety Report 6153077-X (Version None)
Quarter: 2009Q2

REPORT INFORMATION
  Report Type: 
  Country: None (occurrence: None)
  Receive Date: 20090409
  Receipt Date: 20090326
  Transmission Date: 20091009
  Serious: Yes (Other)
  Sender: FDA-Public Use
  Company Number: JPI-006730

PATIENT
  Age: 39 Year
  Sex: Male

DRUGS (5)
  1. XYREM [Suspect]
     Indication: CATAPLEXY
     Dosage: 3 GM, ORAL
     Route: 048
     Dates: start: 20080623
  2. LOSARTAN POTASSIUM AND HYDROCHLOROTHIAZIDE [Suspect]
     Indication: HYPERTENSION
     Dates: start: 20090301, end: 20090326
  3. AMPHETAMINE AND DEXTROAMPHETAMINE SALTS [Suspect]
     Indication: MEMORY IMPAIRMENT
     Dates: start: 20090318, end: 20090326
  4. AMPHETAMINE AND DEXTROAMPHETAMINE SALTS [Suspect]
     Indication: SLEEP DISORDER
     Dates: start: 20090318, end: 20090326
  5. LOSARTAN POTASSIUM [Suspect]
     Indication: HYPERTENSION
     Dates: end: 20090301

REACTIONS (6)
  - BLOOD PRESSURE DECREASED [None]
  - BLOOD PRESSURE INCREASED [None]
  - COLD SWEAT [None]
  - DIZZINESS [None]
  - MEMORY IMPAIRMENT [None]
  - SLEEP DISORDER [None]
